FAERS Safety Report 4848035-9 (Version None)
Quarter: 2005Q4

REPORT INFORMATION
  Report Type: 
  Country: None (occurrence: None)
  Receive Date: 20051206
  Receipt Date: 20051121
  Transmission Date: 20060501
  Serious: Yes (Hospitalization)
  Sender: FDA-Public Use
  Company Number: FR_051107422

PATIENT
  Age: 81 Year
  Sex: Male
  Weight: 83 kg

DRUGS (16)
  1. ALIMTA                   (PEMETREXED ) [Suspect]
     Indication: PLEURAL MESOTHELIOMA
     Dosage: 500 MG/M2, OTHER, INTRAVENOUS
     Route: 042
     Dates: start: 20050901, end: 20050901
  2. DITROPAN [Suspect]
     Dates: end: 20050901
  3. CISPLATIN [Concomitant]
  4. ALLOPURINOL [Concomitant]
  5. ATORVASTATIN CALCIUM [Concomitant]
  6. ALDACTONE [Concomitant]
  7. AMAREL     (GLIMPIRIDE) [Concomitant]
  8. TOPFENA                   ( KETOPROFEN) [Concomitant]
  9. ACTOS [Concomitant]
  10. IKOREL                            (NICORANDIL) [Concomitant]
  11. KARDEGIC                                      (ACETYSALICYLATE LYSINE) [Concomitant]
  12. NITROGLYCERIN [Concomitant]
  13. ACETAMINOPHEN [Concomitant]
  14. BIOSTIM                      (KLEBSIELLA PNEUMONIAE) [Concomitant]
  15. VASTAREL                            (TRIMETAZIDINE HYDROCHLORIDE) [Concomitant]
  16. TOCOPHEROX [Concomitant]

REACTIONS (2)
  - PULMONARY OEDEMA [None]
  - RENAL FAILURE [None]
